FAERS Safety Report 4748744-6 (Version None)
Quarter: 2005Q3

REPORT INFORMATION
  Report Type: 
  Country: None (occurrence: None)
  Receive Date: 20050817
  Receipt Date: 20050805
  Transmission Date: 20060218
  Serious: Yes (Hospitalization, Other)
  Sender: FDA-Public Use
  Company Number: 2005112351

PATIENT
  Sex: Female

DRUGS (7)
  1. NORVASC [Suspect]
     Indication: BLOOD PRESSURE
     Dosage: 10 MG (10 MG, 1 IN 1 D)
  2. ENALAPRIL MALEATE [Concomitant]
  3. MINIORES (PRAZOSIN HYDROCHLORIDE) [Concomitant]
  4. LASIX [Concomitant]
  5. POTASSIUM CHLORIDE [Concomitant]
  6. LIPITOR [Concomitant]
  7. TENORMIN [Concomitant]

REACTIONS (8)
  - BLOOD PRESSURE DECREASED [None]
  - BLOOD PRESSURE INCREASED [None]
  - DEATH OF SIBLING [None]
  - DEHYDRATION [None]
  - DEVICE FAILURE [None]
  - HEADACHE [None]
  - OEDEMA PERIPHERAL [None]
  - STRESS [None]
